FAERS Safety Report 9318687 (Version 3)
Quarter: 2013Q3

REPORT INFORMATION
  Report Type: Spontaneous
  Country: IT (occurrence: IT)
  Receive Date: 20130530
  Receipt Date: 20130703
  Transmission Date: 20140515
  Serious: Yes (Other)
  Sender: FDA-Public Use
  Company Number: IT-009507513-1305ITA015243

PATIENT
  Age: 67 Year
  Sex: Female
  Weight: 110 kg

DRUGS (3)
  1. ESMERON [Suspect]
     Indication: GENERAL ANAESTHESIA
     Dosage: 50 MG, ONCE
     Route: 042
     Dates: start: 20130520, end: 20130520
  2. PROPOFOL [Concomitant]
     Dosage: 180 MG, TOTAL
     Route: 042
  3. FENTANEST [Concomitant]
     Dosage: 100 MCG, TOTAL
     Route: 042

REACTIONS (6)
  - Butterfly rash [Recovered/Resolved]
  - Bronchospasm [Recovered/Resolved]
  - Generalised erythema [Recovered/Resolved]
  - Skin discolouration [Recovered/Resolved]
  - Skin disorder [Recovered/Resolved]
  - Cutaneous vasculitis [Recovered/Resolved]
